FAERS Safety Report 4873801-3 (Version None)
Quarter: 2006Q1

REPORT INFORMATION
  Report Type: 
  Country: None (occurrence: None)
  Receive Date: 20060104
  Receipt Date: 20051216
  Transmission Date: 20060701
  Serious: Yes (Hospitalization, Other)
  Sender: FDA-Public Use
  Company Number: 2005BL006717

PATIENT
  Age: 78 Year
  Sex: Male
  Weight: 52.1637 kg

DRUGS (24)
  1. TIMOLOL MALEATE [Suspect]
     Indication: GLAUCOMA
     Dosage: 4 DROP; TWICE A DAY; OPHTHALMIC
     Route: 047
     Dates: start: 20010101, end: 20050401
  2. LAMICTAL [Concomitant]
  3. LEVOTHYROXINE SODIUM [Concomitant]
  4. QUICK MIX [Concomitant]
  5. VALIUM [Concomitant]
  6. MAGNESIUM CITRATE [Concomitant]
  7. ............. [Concomitant]
  8. CEPHALEXIN [Concomitant]
  9. PHENYTOIN SODIUM CAP [Concomitant]
  10. ASPIIRINE [Concomitant]
  11. TRIPLE ANTIBIOTIC OINTMENT [Concomitant]
  12. PRILOSEC [Concomitant]
  13. BOOST [Concomitant]
  14. CENTRUM SILVER [Concomitant]
  15. ULTRACAL [Concomitant]
  16. SYNTHROID [Concomitant]
  17. DILANTIN [Concomitant]
  18. KEFLEX [Concomitant]
  19. PROTONIX [Concomitant]
  20. PAXIL [Concomitant]
  21. NORTRIPTYLINE HCL [Concomitant]
  22. TRILEPTAL [Concomitant]
  23. M.V.I. [Concomitant]
  24. NUPERCAINAL OINTMENT [Concomitant]

REACTIONS (18)
  - ASPIRATION [None]
  - ASTHENIA [None]
  - CEREBROVASCULAR ACCIDENT [None]
  - DEPRESSION [None]
  - DYSPHASIA [None]
  - EXCORIATION [None]
  - FEEDING TUBE COMPLICATION [None]
  - GASTRIC ULCER HAEMORRHAGE [None]
  - GRANULOMA [None]
  - HAEMATEMESIS [None]
  - HAEMOGLOBIN DECREASED [None]
  - HALLUCINATION [None]
  - HEAD INJURY [None]
  - LARGE INTESTINAL HAEMORRHAGE [None]
  - ODYNOPHAGIA [None]
  - SKIN LACERATION [None]
  - SYNCOPE [None]
  - WEIGHT DECREASED [None]
